FAERS Safety Report 4341629-9 (Version None)
Quarter: 2004Q2

REPORT INFORMATION
  Report Type: 
  Country: None (occurrence: None)
  Receive Date: 20040420
  Receipt Date: 20030519
  Transmission Date: 20050107
  Serious: Yes (Hospitalization)
  Sender: FDA-Public Use
  Company Number: JP-ROCHE-338219

PATIENT
  Age: 43 Year
  Sex: Male
  Weight: 65 kg

DRUGS (5)
  1. ROCEPHIN [Suspect]
     Indication: PYELONEPHRITIS
     Dosage: FORMULATION: BAG.
     Route: 041
     Dates: start: 20030509, end: 20030516
  2. NOVACT M [Concomitant]
     Route: 042
     Dates: start: 20030509
  3. INTRON A [Concomitant]
     Dosage: STRENGTH: 3000000 IU.
     Route: 058
     Dates: start: 20030509
  4. VOLTAREN [Concomitant]
     Indication: ARTHRALGIA
     Route: 048
     Dates: start: 20030509
  5. SELBEX [Concomitant]
     Indication: GASTRIC DISORDER
     Route: 048
     Dates: start: 20030509

REACTIONS (2)
  - PLATELET AGGREGATION ABNORMAL [None]
  - PLATELET COUNT DECREASED [None]
